FAERS Safety Report 14755917 (Version 3)
Quarter: 2018Q3

REPORT INFORMATION
  Report Type: Spontaneous
  Country: US (occurrence: US)
  Receive Date: 20180413
  Receipt Date: 20180727
  Transmission Date: 20181010
  Serious: Yes (Death, Hospitalization, Other)
  Sender: FDA-Public Use
  Company Number: US-PFIZER INC-2018152109

PATIENT
  Age: 72 Year
  Sex: Female
  Weight: 73 kg

DRUGS (1)
  1. IBRANCE [Suspect]
     Active Substance: PALBOCICLIB
     Indication: MALIGNANT NEOPLASM OF THYMUS
     Dosage: 125 MG, DAILY
     Route: 048
     Dates: start: 20160202, end: 20180322

REACTIONS (3)
  - Second primary malignancy [Fatal]
  - Product use in unapproved indication [Unknown]
  - Gallbladder cancer [Fatal]

NARRATIVE: CASE EVENT DATE: 20160202
